FAERS Safety Report 10599119 (Version 2)
Quarter: 2014Q4

REPORT INFORMATION
  Report Type: Spontaneous
  Country: US (occurrence: US)
  Receive Date: 20141121
  Receipt Date: 20141121
  Transmission Date: 20150529
  Serious: No
  Sender: FDA-Public Use
  Company Number: US-VIVUS-2014V1000506

PATIENT
  Age: 81 Year
  Sex: Male
  Weight: 88.53 kg

DRUGS (9)
  1. VITAMIN D3 [Concomitant]
     Active Substance: CHOLECALCIFEROL
  2. STENDRA [Suspect]
     Active Substance: AVANAFIL
     Indication: ERECTILE DYSFUNCTION
     Dosage: 200 MG
     Route: 048
     Dates: start: 20140827
  3. STENDRA [Suspect]
     Active Substance: AVANAFIL
     Dosage: 200 MG
     Route: 048
     Dates: start: 20140924
  4. SIMVASTATIN. [Concomitant]
     Active Substance: SIMVASTATIN
  5. THYROXINE [Concomitant]
     Active Substance: LEVOTHYROXINE
  6. OMEGA 3 [Concomitant]
     Active Substance: OMEGA-3 FATTY ACIDS
  7. VITAMIN B12 [Concomitant]
     Active Substance: CYANOCOBALAMIN
  8. MULTIVITAMIN [Concomitant]
     Active Substance: VITAMINS
  9. METOPROLOL [Concomitant]
     Active Substance: METOPROLOL

REACTIONS (2)
  - Erectile dysfunction [Unknown]
  - Drug ineffective [Unknown]

NARRATIVE: CASE EVENT DATE: 20140827
